FAERS Safety Report 14554565 (Version 1)
Quarter: 2018Q1

REPORT INFORMATION
  Report Type: Spontaneous
  Country: US (occurrence: US)
  Receive Date: 20180220
  Receipt Date: 20180220
  Transmission Date: 20180509
  Serious: Yes (Death)
  Sender: FDA-Public Use
  Company Number: None

PATIENT
  Age: 53 Year
  Sex: Female

DRUGS (3)
  1. ACETAMINOPHEN AND DIPHENHYDRAMINE HYDROCHLORIDE [Suspect]
     Active Substance: ACETAMINOPHEN\DIPHENHYDRAMINE HYDROCHLORIDE
  2. MITRAGYNA SPECIOSA KORTHALS (BOTANIC NAME) [Suspect]
     Active Substance: MITRAGYNINE\HERBALS
  3. ALCOHOL. [Suspect]
     Active Substance: ALCOHOL

REACTIONS (8)
  - Acute hepatic failure [None]
  - Encephalopathy [None]
  - Renal failure [None]
  - Coagulopathy [None]
  - Respiratory failure [None]
  - Treatment failure [None]
  - Sepsis [None]
  - Hypotension [None]
